FAERS Safety Report 9118865 (Version 2)
Quarter: 2013Q1

REPORT INFORMATION
  Report Type: Spontaneous
  Country: US (occurrence: US)
  Receive Date: 20130226
  Receipt Date: 20130319
  Transmission Date: 20140127
  Serious: Yes (Other)
  Sender: FDA-Public Use
  Company Number: PHEH2013US004539

PATIENT
  Sex: Female

DRUGS (13)
  1. TOBI [Suspect]
     Indication: CYSTIC FIBROSIS
     Dosage: 300 MG, BID
  2. PULMOZYME [Concomitant]
     Dosage: UNK
  3. SODIUM CHLORIDE [Concomitant]
     Dosage: UNK UKN, UNK
  4. AQUADEKS [Concomitant]
     Dosage: UNK UKN, UNK
  5. CREON [Concomitant]
     Dosage: UNK UKN, UNK
  6. CIPRO [Concomitant]
     Dosage: UNK UKN, UNK
  7. NEXIUM 1-2-3 [Concomitant]
     Dosage: UNK UKN, UNK
  8. SINGULAIR [Concomitant]
     Dosage: UNK UKN, UNK
  9. VENTOLIN                           /00942701/ [Concomitant]
     Dosage: UNK UKN, UNK
  10. AZITHROMYCIN [Concomitant]
     Dosage: UNK UKN, UNK
  11. ALBUTEROL [Concomitant]
     Dosage: UNK UKN, UNK
  12. SYMBICORT [Concomitant]
     Dosage: UNK UKN, UNK
  13. MULTI-VIT [Concomitant]
     Dosage: UNK UKN, UNK

REACTIONS (2)
  - Gastrointestinal disorder [Unknown]
  - Weight abnormal [Unknown]
